FAERS Safety Report 7176020-3 (Version None)
Quarter: 2010Q4

REPORT INFORMATION
  Report Type: 
  Country: None (occurrence: None)
  Receive Date: 20101220
  Receipt Date: 20101209
  Transmission Date: 20110411
  Serious: No
  Sender: FDA-Public Use
  Company Number: US-BIOGENIDEC-2010BI036029

PATIENT
  Age: 64 Year
  Sex: Female

DRUGS (2)
  1. TYSABRI [Suspect]
     Indication: MULTIPLE SCLEROSIS
     Route: 042
     Dates: start: 20070523, end: 20100128
  2. TYSABRI [Suspect]
     Route: 042
     Dates: start: 20101001

REACTIONS (2)
  - IMPAIRED DRIVING ABILITY [None]
  - MUSCULAR WEAKNESS [None]
